FAERS Safety Report 10028620 (Version 2)
Quarter: 2014Q2

REPORT INFORMATION
  Report Type: Spontaneous
  Country: US (occurrence: US)
  Receive Date: 20140321
  Receipt Date: 20140507
  Transmission Date: 20141212
  Serious: Yes (Other)
  Sender: FDA-Public Use
  Company Number: US-BAYER-2014-041044

PATIENT
  Sex: Female

DRUGS (2)
  1. MIRENA [Suspect]
     Indication: CONTRACEPTION
     Dosage: 20 MCG/24HR, CONT
     Route: 015
     Dates: start: 20120807
  2. MIRENA [Suspect]
     Indication: MENORRHAGIA

REACTIONS (5)
  - Pregnancy with contraceptive device [Not Recovered/Not Resolved]
  - Drug ineffective [None]
  - Device dislocation [Recovered/Resolved]
  - Abdominal pain lower [Not Recovered/Not Resolved]
  - Genital haemorrhage [Not Recovered/Not Resolved]
